FAERS Safety Report 24540963 (Version 1)
Quarter: 2024Q4

REPORT INFORMATION
  Report Type: Spontaneous
  Country: SI (occurrence: SI)
  Receive Date: 20241023
  Receipt Date: 20241023
  Transmission Date: 20250115
  Serious: Yes (Hospitalization, Other)
  Sender: MERCK
  Company Number: SI-009507513-2410SVN006094

PATIENT
  Sex: Female

DRUGS (2)
  1. PEMBROLIZUMAB [Suspect]
     Active Substance: PEMBROLIZUMAB
     Indication: Invasive ductal breast carcinoma
     Dosage: UNK
     Dates: start: 202312, end: 2024
  2. PEMBROLIZUMAB [Suspect]
     Active Substance: PEMBROLIZUMAB
     Indication: Triple negative breast cancer

REACTIONS (16)
  - Pyrexia [Unknown]
  - Inflammatory marker increased [Unknown]
  - Frontotemporal dementia [Unknown]
  - CSF lymphocyte count increased [Unknown]
  - CSF protein increased [Unknown]
  - CSF lactate dehydrogenase increased [Unknown]
  - CSF mononuclear cell count increased [Unknown]
  - Adrenal insufficiency [Unknown]
  - Immune-mediated encephalitis [Unknown]
  - Systemic inflammatory response syndrome [Unknown]
  - Haemophagocytic lymphohistiocytosis [Unknown]
  - Cytokine storm [Unknown]
  - Viral infection [Unknown]
  - Encephalitis autoimmune [Unknown]
  - General physical health deterioration [Unknown]
  - C-reactive protein abnormal [Unknown]

NARRATIVE: CASE EVENT DATE: 20240101
